FAERS Safety Report 5416791-7 (Version None)
Quarter: 2007Q3

REPORT INFORMATION
  Report Type: 
  Country: None (occurrence: None)
  Receive Date: 20070815
  Receipt Date: 20070815
  Transmission Date: 20080115
  Serious: Yes (Life-Threatening)
  Sender: FDA-Public Use
  Company Number: None

PATIENT
  Age: 66 Year
  Sex: Female
  Weight: 129.8 kg

DRUGS (1)
  1. MEPERIDINE HCL [Suspect]
     Indication: PULMONARY EMBOLISM
     Dosage: 75 MG -1/2 RECEIVED- ONCE -PRN- IV
     Route: 042
     Dates: start: 20070730, end: 20070730

REACTIONS (1)
  - RESPIRATORY DISTRESS [None]
